FAERS Safety Report 20912538 (Version 1)
Quarter: 2022Q2

REPORT INFORMATION
  Report Type: Spontaneous
  Country: US (occurrence: US)
  Receive Date: 20220603
  Receipt Date: 20220603
  Transmission Date: 20220720
  Serious: Yes (Hospitalization)
  Sender: FDA-Public Use
  Company Number: US-ASCENDIS PHARMA-2021US000120

PATIENT

DRUGS (1)
  1. SKYTROFA [Suspect]
     Active Substance: LONAPEGSOMATROPIN-TCGD
     Indication: Hypopituitarism
     Dosage: 3 MILLIGRAM, WEEKLY
     Route: 058
     Dates: start: 20211216, end: 20211223

REACTIONS (5)
  - Dehydration [Unknown]
  - Gastroenteritis [Unknown]
  - Rhinovirus infection [Unknown]
  - Metapneumovirus infection [Unknown]
  - Influenza [Recovered/Resolved]

NARRATIVE: CASE EVENT DATE: 20211219
